FAERS Safety Report 10380676 (Version 3)
Quarter: 2014Q3

REPORT INFORMATION
  Report Type: Report from Study
  Country: PY (occurrence: PY)
  Receive Date: 20140813
  Receipt Date: 20140828
  Transmission Date: 20150326
  Serious: Yes (Hospitalization, Other)
  Sender: FDA-Public Use
  Company Number: PHHY2013PY148440

PATIENT
  Sex: Male

DRUGS (1)
  1. GLIVEC [Suspect]
     Active Substance: IMATINIB MESYLATE
     Indication: CHRONIC MYELOID LEUKAEMIA
     Dosage: 400 MG, UNK
     Route: 048
     Dates: start: 200401

REACTIONS (3)
  - Diabetes mellitus [Unknown]
  - Cardiac failure [Unknown]
  - Pneumonia [Unknown]
